FAERS Safety Report 7421584-5 (Version None)
Quarter: 2011Q2

REPORT INFORMATION
  Report Type: 
  Country: None (occurrence: None)
  Receive Date: 20110418
  Receipt Date: 20110404
  Transmission Date: 20111010
  Serious: Yes (Other)
  Sender: FDA-Public Use
  Company Number: DE-GENENTECH-316632

PATIENT
  Sex: Female

DRUGS (5)
  1. MABTHERA [Suspect]
     Dosage: UNK
     Route: 042
     Dates: start: 20090601
  2. MABTHERA [Suspect]
     Dosage: UNK
     Route: 042
     Dates: end: 20090501
  3. CHOP REGIMEN [Concomitant]
     Indication: B-CELL LYMPHOMA
     Dosage: UNK
     Dates: start: 20050401
  4. R-FCM REGIMEN [Concomitant]
     Indication: B-CELL LYMPHOMA
     Dosage: UNK
     Dates: end: 20090501
  5. MABTHERA [Suspect]
     Indication: B-CELL LYMPHOMA
     Dosage: UNK
     Route: 042
     Dates: start: 20050401

REACTIONS (1)
  - ACUTE MYELOID LEUKAEMIA [None]
